FAERS Safety Report 5045180-2 (Version None)
Quarter: 2006Q3

REPORT INFORMATION
  Report Type: 
  Country: None (occurrence: None)
  Receive Date: 20060707
  Receipt Date: 20040706
  Transmission Date: 20061208
  Serious: Yes (Other)
  Sender: FDA-Public Use
  Company Number: US-GLAXOSMITHKLINE-A0521360A

PATIENT
  Sex: Male

DRUGS (3)
  1. PAXIL [Suspect]
     Indication: DEPRESSION
     Route: 048
     Dates: start: 20000818, end: 20000926
  2. CELEXA [Suspect]
     Route: 048
     Dates: start: 20000912
  3. RITALIN [Concomitant]
     Indication: ATTENTION DEFICIT/HYPERACTIVITY DISORDER
     Route: 048
     Dates: start: 20000922

REACTIONS (13)
  - CONDITION AGGRAVATED [None]
  - DEPENDENCE [None]
  - DEPRESSION [None]
  - DISTURBANCE IN ATTENTION [None]
  - DIZZINESS [None]
  - DRUG WITHDRAWAL SYNDROME [None]
  - FATIGUE [None]
  - FEELING OF DESPAIR [None]
  - INTENTIONAL SELF-INJURY [None]
  - LACERATION [None]
  - MOVEMENT DISORDER [None]
  - SUICIDAL IDEATION [None]
  - TREMOR [None]
